FAERS Safety Report 10446901 (Version 2)
Quarter: 2014Q3

REPORT INFORMATION
  Report Type: Spontaneous
  Country: AU (occurrence: AU)
  Receive Date: 20140911
  Receipt Date: 20140915
  Transmission Date: 20150326
  Serious: Yes (Death)
  Sender: FDA-Public Use
  Company Number: AU-JNJFOC-20140904131

PATIENT
  Age: 30 Year
  Sex: Male

DRUGS (1)
  1. INVEGA SUSTENNA [Suspect]
     Active Substance: PALIPERIDONE PALMITATE
     Indication: PRODUCT USED FOR UNKNOWN INDICATION
     Route: 030
     Dates: start: 2013

REACTIONS (7)
  - Stereotypy [Unknown]
  - Completed suicide [Fatal]
  - Abasia [Unknown]
  - Mental retardation [Unknown]
  - Crying [Unknown]
  - Depression [Unknown]
  - Pruritus [Unknown]
